FAERS Safety Report 23958146 (Version 2)
Quarter: 2024Q3

REPORT INFORMATION
  Report Type: Spontaneous
  Country: US (occurrence: US)
  Receive Date: 20240610
  Receipt Date: 20240705
  Transmission Date: 20241016
  Serious: Yes (Hospitalization)
  Sender: CALLIDITAS THERAPEUTICS
  Company Number: US-Calliditas-2024CAL00978

PATIENT
  Age: 83 Year
  Sex: Male
  Weight: 83 kg

DRUGS (1)
  1. TARPEYO [Suspect]
     Active Substance: BUDESONIDE
     Indication: IgA nephropathy
     Route: 048
     Dates: start: 20240509

REACTIONS (11)
  - Hospitalisation [Unknown]
  - Dyspnoea [Unknown]
  - Weight increased [Unknown]
  - Visual impairment [Unknown]
  - Gait disturbance [Unknown]
  - Hypertension [Unknown]
  - Peripheral swelling [Unknown]
  - Fatigue [Unknown]
  - Tearfulness [Unknown]
  - Blood creatinine increased [Unknown]
  - Intentional underdose [Not Recovered/Not Resolved]
